FAERS Safety Report 23754030 (Version 2)
Quarter: 2024Q2

REPORT INFORMATION
  Report Type: Spontaneous
  Country: US (occurrence: US)
  Receive Date: 20240417
  Receipt Date: 20240420
  Transmission Date: 20240715
  Serious: No
  Sender: FDA-Public Use
  Company Number: US-ABBVIE-5718801

PATIENT
  Age: 66 Year

DRUGS (1)
  1. LATISSE [Suspect]
     Active Substance: BIMATOPROST
     Indication: Eyelash thickening
     Dosage: FORM STRENGTH 0.3MG/ML ?FREQUENCY 1 DROP EACH EYE
     Route: 047
     Dates: start: 20240229

REACTIONS (4)
  - Erythema [Recovered/Resolved]
  - Eye swelling [Recovered/Resolved]
  - Adverse drug reaction [Unknown]
  - Eye pruritus [Recovered/Resolved]

NARRATIVE: CASE EVENT DATE: 20240229
